FAERS Safety Report 7056470-6 (Version None)
Quarter: 2010Q4

REPORT INFORMATION
  Report Type: 
  Country: None (occurrence: None)
  Receive Date: 20101021
  Receipt Date: 20101018
  Transmission Date: 20110411
  Serious: Yes (Other)
  Sender: FDA-Public Use
  Company Number: US-WYE-H18204210

PATIENT
  Sex: Female

DRUGS (4)
  1. PHOSPHOLINE IODIDE [Suspect]
     Indication: GLAUCOMA
     Dosage: DOSE NOT PROVIDED, INITIATED MANY YEARS AGO AND STOPPED APPROX. 8 YEARS AGO
     Route: 047
  2. PHOSPHOLINE IODIDE [Suspect]
     Dosage: 0.125%, 6.25 MG/5 ML STARTED IN FEB-2010
  3. PRED FORTE [Concomitant]
     Indication: CORNEAL DISORDER
     Dosage: DOSE NOT PROVIDED
     Route: 047
  4. BETOPTIC [Concomitant]
     Indication: GLAUCOMA
     Dosage: DOSE NOT PROVIDED
     Route: 047

REACTIONS (7)
  - CORNEAL TRANSPLANT [None]
  - DRUG DISPENSING ERROR [None]
  - EYE PAIN [None]
  - INCORRECT PRODUCT STORAGE [None]
  - INTENTIONAL DRUG MISUSE [None]
  - LACRIMATION INCREASED [None]
  - VISUAL ACUITY REDUCED [None]
